FAERS Safety Report 7660254-5 (Version None)
Quarter: 2011Q3

REPORT INFORMATION
  Report Type: 
  Country: None (occurrence: None)
  Receive Date: 20110805
  Receipt Date: 20110722
  Transmission Date: 20111222
  Serious: Yes (Hospitalization)
  Sender: FDA-Public Use
  Company Number: PHHY2011TW66248

PATIENT
  Sex: Female
  Weight: 64.9 kg

DRUGS (1)
  1. ZOLEDRONIC [Suspect]
     Dosage: 4 MG, UNK
     Route: 042
     Dates: start: 20100609, end: 20110701

REACTIONS (6)
  - CHROMATURIA [None]
  - ABDOMINAL PAIN UPPER [None]
  - DECREASED APPETITE [None]
  - HAEMATURIA [None]
  - HYPOKALAEMIA [None]
  - OEDEMA PERIPHERAL [None]
